FAERS Safety Report 10006373 (Version 1)
Quarter: 2014Q1

REPORT INFORMATION
  Report Type: Spontaneous
  Country: FR (occurrence: FR)
  Receive Date: 20140313
  Receipt Date: 20140313
  Transmission Date: 20141002
  Serious: Yes (Death, Hospitalization)
  Sender: FDA-Public Use
  Company Number: FR-PFIZER INC-2014065923

PATIENT
  Age: 72 Year
  Sex: Male
  Weight: 77 kg

DRUGS (4)
  1. FLUOROURACILE PFIZER [Suspect]
     Indication: ANAL CANCER
     Dosage: UNK
     Route: 041
     Dates: start: 20130807, end: 20140121
  2. SOLU-MEDROL [Suspect]
     Indication: ANAL CANCER
     Dosage: 100 MG
     Route: 042
     Dates: start: 20130807, end: 20140121
  3. ELVORINE [Suspect]
     Indication: ANAL CANCER
     Dosage: 195 MG
     Route: 041
     Dates: start: 20130807, end: 20140121
  4. AMETYCINE [Suspect]
     Indication: ANAL CANCER
     Dosage: 14 MG
     Route: 041
     Dates: start: 20130807, end: 20140107

REACTIONS (3)
  - Disease progression [Fatal]
  - Anal cancer [Fatal]
  - Interstitial lung disease [Unknown]
